FAERS Safety Report 7282417-3 (Version None)
Quarter: 2011Q1

REPORT INFORMATION
  Report Type: 
  Country: None (occurrence: None)
  Receive Date: 20110209
  Receipt Date: 20110128
  Transmission Date: 20110831
  Serious: Yes (Death)
  Sender: FDA-Public Use
  Company Number: US-CELGENEUS-163-21880-11020145

PATIENT
  Sex: Female

DRUGS (4)
  1. REVLIMID [Suspect]
     Indication: MULTIPLE MYELOMA
     Route: 048
     Dates: start: 20070301
  2. REVLIMID [Suspect]
     Route: 048
     Dates: start: 20070816
  3. REVLIMID [Suspect]
     Dosage: 5 TO 10 MG
     Route: 048
     Dates: start: 20081101
  4. REVLIMID [Suspect]
     Route: 048
     Dates: start: 20070401

REACTIONS (1)
  - DEATH [None]
